FAERS Safety Report 10336168 (Version 2)
Quarter: 2014Q3

REPORT INFORMATION
  Report Type: Spontaneous
  Country: US (occurrence: US)
  Receive Date: 20140723
  Receipt Date: 20140723
  Transmission Date: 20150326
  Serious: No
  Sender: FDA-Public Use
  Company Number: US-BRISTOL-MYERS SQUIBB COMPANY-19866227

PATIENT
  Age: 56 Year
  Sex: Female
  Weight: 148.29 kg

DRUGS (3)
  1. WARFARIN SODIUM. [Suspect]
     Active Substance: WARFARIN SODIUM
     Dates: start: 2008
  2. COUMADIN [Suspect]
     Active Substance: WARFARIN SODIUM
     Dosage: 4MG AND 5MG
  3. HYDROCHLOROTHIAZIDE. [Concomitant]
     Active Substance: HYDROCHLOROTHIAZIDE

REACTIONS (2)
  - Cellulitis [Unknown]
  - International normalised ratio decreased [Unknown]
